FAERS Safety Report 18921224 (Version 1)
Quarter: 2021Q1

REPORT INFORMATION
  Report Type: Spontaneous
  Country: US (occurrence: US)
  Receive Date: 20210219
  Receipt Date: 20210219
  Transmission Date: 20210420
  Serious: Yes (Hospitalization)
  Sender: FDA-Public Use
  Company Number: None

PATIENT
  Age: 34 Year
  Sex: Female
  Weight: 47 kg

DRUGS (19)
  1. ARIPIPRAZOLE. [Concomitant]
     Active Substance: ARIPIPRAZOLE
  2. CALCIUM/VITAMIN D [Concomitant]
     Active Substance: CALCIUM\VITAMIN D
  3. CYCLOSPORINE. [Concomitant]
     Active Substance: CYCLOSPORINE
  4. AZITHROMYCIN ANHYDROUS. [Concomitant]
     Active Substance: AZITHROMYCIN ANHYDROUS
  5. FLUTICASONE/VILANTEROL [Concomitant]
     Active Substance: FLUTICASONE FUROATE\VILANTEROL TRIFENATATE
  6. ALBUTEROL. [Concomitant]
     Active Substance: ALBUTEROL
  7. LORATIDINE [Concomitant]
     Active Substance: LORATADINE
  8. METOCLOPRAMIDE. [Concomitant]
     Active Substance: METOCLOPRAMIDE
  9. NORETHINDRONE. [Concomitant]
     Active Substance: NORETHINDRONE
  10. OXYCHLOROSENE [Concomitant]
     Active Substance: OXYCHLOROSENE
  11. GALCANEZUMAB [Concomitant]
     Active Substance: GALCANEZUMAB
  12. LANSOPRAZOLE. [Concomitant]
     Active Substance: LANSOPRAZOLE
  13. MAGNESIUM OXIDE. [Concomitant]
     Active Substance: MAGNESIUM OXIDE
  14. PROPRANOLOL [Concomitant]
     Active Substance: PROPRANOLOL HYDROCHLORIDE
  15. SERTRALINE [Concomitant]
     Active Substance: SERTRALINE HYDROCHLORIDE
  16. BAMLANIVIMAB FOR EUA [Suspect]
     Active Substance: BAMLANIVIMAB
     Indication: COVID-19
     Route: 042
     Dates: start: 20210208, end: 20210208
  17. DEXAMETHASONE. [Concomitant]
     Active Substance: DEXAMETHASONE
  18. APIXABAN [Concomitant]
     Active Substance: APIXABAN
  19. DICYCLOMINE [Concomitant]
     Active Substance: DICYCLOMINE HYDROCHLORIDE

REACTIONS (5)
  - Pyrexia [None]
  - Asthenia [None]
  - Pain [None]
  - Liver function test increased [None]
  - Headache [None]

NARRATIVE: CASE EVENT DATE: 20210209
